FAERS Safety Report 5468218-7 (Version None)
Quarter: 2007Q3

REPORT INFORMATION
  Report Type: 
  Country: None (occurrence: None)
  Receive Date: 20070921
  Receipt Date: 20070912
  Transmission Date: 20080115
  Serious: Yes (Life-Threatening, Hospitalization)
  Sender: FDA-Public Use
  Company Number: 2007-03294

PATIENT
  Age: 43 Year
  Sex: Female

DRUGS (3)
  1. TRELSTAR DEPOT [Suspect]
     Indication: BREAST CANCER
     Dosage: 3.75 MG, INTRAMUSCULAR
     Route: 030
     Dates: start: 20061227, end: 20070613
  2. EXEMESTANE [Suspect]
     Indication: BREAST CANCER
     Dosage: 25 MG, 1 IN 1 D, ORAL
     Route: 048
     Dates: start: 20070418
  3. CHEMOTHERAPY (DIPHENHYDRAMINE) [Concomitant]

REACTIONS (1)
  - PULMONARY EMBOLISM [None]
